FAERS Safety Report 8536636 (Version 2)
Quarter: 2014Q3

REPORT INFORMATION
  Report Type: Report from Study
  Country: US (occurrence: US)
  Receive Date: 20120430
  Receipt Date: 20140908
  Transmission Date: 20150326
  Serious: Yes (Hospitalization, Other)
  Sender: FDA-Public Use
  Company Number: US-ROCHE-1060424

PATIENT
  Age: 76 Year
  Sex: Male
  Weight: 90 kg

DRUGS (2)
  1. SUNITINIB MALATE [Suspect]
     Active Substance: SUNITINIB MALATE
     Indication: METASTATIC RENAL CELL CARCINOMA
     Dosage: LAST DATE PRIOR TO SAE 01-APR-2012
     Route: 048
     Dates: start: 20120123
  2. BEVACIZUMAB [Suspect]
     Active Substance: BEVACIZUMAB
     Indication: METASTATIC RENAL CELL CARCINOMA
     Dosage: 5MG/KG IV OVER 90-30 MIN ON DAYS 1, 15 AND 29, LAST DATE PRIOR TO SAE 19-MAR-2012
     Route: 042
     Dates: start: 20120123

REACTIONS (3)
  - Renal failure acute [Unknown]
  - Platelet count decreased [Unknown]
  - Haemolytic uraemic syndrome [Recovered/Resolved]

NARRATIVE: CASE EVENT DATE: 20120402
